FAERS Safety Report 9149500 (Version 1)
Quarter: 2013Q1

REPORT INFORMATION
  Report Type: Spontaneous
  Country: US (occurrence: US)
  Receive Date: 20130308
  Receipt Date: 20130308
  Transmission Date: 20140127
  Serious: No
  Sender: FDA-Public Use
  Company Number: US-ENDO PHARMACEUTICALS INC.-OPCR20120135

PATIENT
  Age: 31 Year
  Sex: Female

DRUGS (1)
  1. OPANA ER [Suspect]
     Indication: BACK PAIN
     Route: 048
     Dates: start: 20120223, end: 20120223

REACTIONS (3)
  - Chest pain [Unknown]
  - Swollen tongue [Unknown]
  - Heart rate increased [Unknown]
